FAERS Safety Report 4795158-9 (Version None)
Quarter: 2005Q4

REPORT INFORMATION
  Report Type: 
  Country: None (occurrence: None)
  Receive Date: 20051006
  Receipt Date: 20051006
  Transmission Date: 20060501
  Serious: Yes (Death)
  Sender: FDA-Public Use
  Company Number: None

PATIENT
  Age: 26 Year
  Sex: Female
  Weight: 129.2752 kg

DRUGS (1)
  1. DURAGESIC-50 [Suspect]
     Indication: BACK PAIN
     Dosage: APPLY ONE PATCH TOPICALLY AND CHANGE EVERY 72 HOURS
     Route: 061
     Dates: start: 20050301

REACTIONS (2)
  - ACCIDENTAL OVERDOSE [None]
  - FALL [None]
